FAERS Safety Report 22126585 (Version 1)
Quarter: 2023Q1

REPORT INFORMATION
  Report Type: Spontaneous
  Country: IT (occurrence: None)
  Receive Date: 20230322
  Receipt Date: 20230322
  Transmission Date: 20230417
  Serious: Yes (Hospitalization)
  Sender: FDA-Public Use
  Company Number: 2023A064256

PATIENT
  Age: 71 Year
  Sex: Female

DRUGS (6)
  1. DAPAGLIFLOZIN [Suspect]
     Active Substance: DAPAGLIFLOZIN
     Indication: Diabetes mellitus
     Dosage: 10 MG/DAY
     Route: 048
     Dates: end: 20230212
  2. METFORMIN [Suspect]
     Active Substance: METFORMIN HYDROCHLORIDE
     Indication: Diabetes mellitus
     Dosage: 750 MG X 2/DAY
     Route: 048
     Dates: end: 20230212
  3. BISOPROLOL [Concomitant]
     Active Substance: BISOPROLOL
  4. RAMIPRIL [Concomitant]
     Active Substance: RAMIPRIL
  5. ASPIRIN [Concomitant]
     Active Substance: ASPIRIN
  6. LEVOTHYROXINE SODIUM [Concomitant]
     Active Substance: LEVOTHYROXINE SODIUM

REACTIONS (2)
  - Metabolic acidosis [Recovered/Resolved]
  - Atrial fibrillation [Recovered/Resolved]

NARRATIVE: CASE EVENT DATE: 20230212
